FAERS Safety Report 5510770-7 (Version None)
Quarter: 2007Q4

REPORT INFORMATION
  Report Type: 
  Country: None (occurrence: None)
  Receive Date: 20071108
  Receipt Date: 20071102
  Transmission Date: 20080405
  Serious: Yes (Hospitalization)
  Sender: FDA-Public Use
  Company Number: B0493728A

PATIENT
  Sex: Female

DRUGS (8)
  1. VALTREX [Suspect]
     Indication: DRUG USE FOR UNKNOWN INDICATION
     Dosage: 2TAB THREE TIMES PER DAY
     Route: 048
     Dates: start: 20071011, end: 20071015
  2. DEPAS [Concomitant]
     Route: 048
     Dates: start: 20071001
  3. ACINON [Concomitant]
     Route: 048
     Dates: start: 20071001
  4. PROMAC [Concomitant]
     Route: 048
     Dates: start: 20071001
  5. EPEL [Concomitant]
     Route: 048
     Dates: start: 20071009
  6. DICLOFENAC SODIUM [Concomitant]
     Route: 048
     Dates: start: 20071009
  7. MUCODYNE [Concomitant]
     Route: 048
     Dates: start: 20071011
  8. ALLEGRA [Concomitant]
     Route: 048
     Dates: start: 20071011

REACTIONS (2)
  - GASTRIC HYPERMOTILITY [None]
  - HEADACHE [None]
